FAERS Safety Report 24706100 (Version 1)
Quarter: 2024Q4

REPORT INFORMATION
  Report Type: Other
  Country: IN (occurrence: JP)
  Receive Date: 20241206
  Receipt Date: 20241206
  Transmission Date: 20250115
  Serious: Yes (Hospitalization, Other)
  Sender: BRECKENRIDGE PHARMACEUTICAL, INC.
  Company Number: JP-Breckenridge Pharmaceutical, Inc.-2166585

PATIENT
  Age: 71 Year
  Sex: Male

DRUGS (1)
  1. DULOXETINE [Suspect]
     Active Substance: DULOXETINE
     Indication: Neuropathy peripheral

REACTIONS (2)
  - Inappropriate antidiuretic hormone secretion [Recovered/Resolved with Sequelae]
  - Hypouricaemia [Recovered/Resolved]
